FAERS Safety Report 5875020-0 (Version None)
Quarter: 2008Q3

REPORT INFORMATION
  Report Type: 
  Country: None (occurrence: None)
  Receive Date: 20080908
  Receipt Date: 20080908
  Transmission Date: 20090109
  Serious: No
  Sender: FDA-Public Use
  Company Number: None

PATIENT
  Age: 55 Year
  Sex: Male
  Weight: 104.3273 kg

DRUGS (1)
  1. CEPHALEXIN [Suspect]
     Indication: BACTERIAL INFECTION
     Dosage: 1000 MG  2 X DAY  PO
     Route: 048
     Dates: start: 20080905, end: 20080907

REACTIONS (2)
  - FOLLICULITIS [None]
  - SUPERINFECTION [None]
